FAERS Safety Report 22377623 (Version 9)
Quarter: 2024Q4

REPORT INFORMATION
  Report Type: Report from Study
  Country: KR (occurrence: KR)
  Receive Date: 20230529
  Receipt Date: 20241009
  Transmission Date: 20250115
  Serious: Yes (Hospitalization, Other)
  Sender: ABBVIE
  Company Number: KR-ABBVIE-5182168

PATIENT
  Age: 55 Year
  Sex: Male
  Weight: 71 kg

DRUGS (15)
  1. SKYRIZI [Suspect]
     Active Substance: RISANKIZUMAB-RZAA
     Indication: Psoriasis
     Dosage: ONCE
     Route: 058
     Dates: start: 20221227, end: 20221227
  2. SKYRIZI [Suspect]
     Active Substance: RISANKIZUMAB-RZAA
     Dosage: ONCE
     Route: 058
     Dates: start: 20231229, end: 20231229
  3. SKYRIZI [Suspect]
     Active Substance: RISANKIZUMAB-RZAA
     Dosage: ONCE
     Route: 058
     Dates: start: 20230712, end: 20230712
  4. SKYRIZI [Suspect]
     Active Substance: RISANKIZUMAB-RZAA
     Dosage: ONCE
     Route: 058
     Dates: start: 20231004, end: 20231004
  5. SKYRIZI [Suspect]
     Active Substance: RISANKIZUMAB-RZAA
     Dosage: ONCE
     Route: 058
     Dates: start: 20230125, end: 20230125
  6. SKYRIZI [Suspect]
     Active Substance: RISANKIZUMAB-RZAA
     Dosage: ONCE
     Route: 058
     Dates: start: 20230419, end: 20230419
  7. ELROTON [Concomitant]
     Indication: Ischaemic heart disease prophylaxis
     Dosage: TAB 40MG
     Route: 048
     Dates: start: 20230328
  8. ELROTON [Concomitant]
     Indication: Ischaemic heart disease prophylaxis
     Route: 048
     Dates: start: 20230206, end: 20230328
  9. NICORANDIL [Concomitant]
     Active Substance: NICORANDIL
     Indication: Ischaemic heart disease prophylaxis
     Dosage: TAB 5MG(NICORANDIL 5 )
     Route: 048
     Dates: start: 20230206
  10. Topisol [Concomitant]
     Indication: Psoriasis
     Dosage: UNIT DOSE: 1 FTU(FINGER TIP UNIT)
     Route: 061
     Dates: start: 20220711
  11. DILTIAZEM HYDROCHLORIDE [Concomitant]
     Active Substance: DILTIAZEM HYDROCHLORIDE
     Indication: Ischaemic heart disease prophylaxis
     Dosage: RETARD TAB 90MG(DILTIAZEM HYDROCHLORIDE 90 )
     Route: 048
     Dates: start: 20230206, end: 20230328
  12. NITROLINGUAL [Concomitant]
     Active Substance: NITROGLYCERIN
     Indication: Ischaemic heart disease prophylaxis
     Dosage: TIME INTERVAL: AS NECESSARY: UNIT DOSE: 1 SPRAY?14.4ML(NITROGLYCERIN DILUTED SOLUTION 15.24G/100 )
     Route: 060
     Dates: start: 20231016
  13. FELODION [Concomitant]
     Indication: Ischaemic heart disease prophylaxis
     Dosage: SR TAB 5MG(FELODIPINE 5 )
     Route: 048
     Dates: start: 20230329
  14. LIPITOR [Concomitant]
     Active Substance: ATORVASTATIN CALCIUM
     Indication: Ischaemic heart disease prophylaxis
     Dosage: TAB 10MG
     Route: 048
     Dates: start: 20230207, end: 20230328
  15. ASPIRIN [Concomitant]
     Active Substance: ASPIRIN
     Indication: Ischaemic heart disease prophylaxis
     Dosage: PROTECT TAB 100MG(ASPIRIN 100 )
     Route: 048
     Dates: start: 20230206

REACTIONS (1)
  - Acute myocardial infarction [Recovering/Resolving]

NARRATIVE: CASE EVENT DATE: 20230206
